FAERS Safety Report 19211589 (Version 1)
Quarter: 2021Q2

REPORT INFORMATION
  Report Type: Spontaneous
  Country: US (occurrence: US)
  Receive Date: 20210503
  Receipt Date: 20210503
  Transmission Date: 20210717
  Serious: No
  Sender: FDA-Public Use
  Company Number: None

PATIENT
  Age: 55 Year
  Sex: Male

DRUGS (1)
  1. VANCOMYCIN (VANCOMYCIN HCL 125MG CAP) [Suspect]
     Active Substance: VANCOMYCIN HYDROCHLORIDE
     Dates: start: 20210405

REACTIONS (2)
  - Vomiting [None]
  - Nausea [None]

NARRATIVE: CASE EVENT DATE: 20210406
